FAERS Safety Report 7009784-X (Version None)
Quarter: 2010Q3

REPORT INFORMATION
  Report Type: 
  Country: None (occurrence: None)
  Receive Date: 20100923
  Receipt Date: 20100921
  Transmission Date: 20110219
  Serious: Yes (Death)
  Sender: FDA-Public Use
  Company Number: JP-SANOFI-AVENTIS-2010SA056661

PATIENT
  Sex: Male

DRUGS (1)
  1. TAXOTERE [Suspect]
     Route: 051

REACTIONS (1)
  - INTERSTITIAL LUNG DISEASE [None]
